FAERS Safety Report 8591215-X (Version None)
Quarter: 2012Q3

REPORT INFORMATION
  Report Type: 
  Country: None (occurrence: None)
  Receive Date: 20120813
  Receipt Date: 20120808
  Transmission Date: 20120928
  Serious: Yes (Death, Life-Threatening)
  Sender: FDA-Public Use
  Company Number: GB-ROCHE-801259

PATIENT
  Sex: Female
  Weight: 95 kg

DRUGS (28)
  1. MABTHERA [Suspect]
     Indication: CHRONIC LYMPHOCYTIC LEUKAEMIA
     Route: 042
     Dates: start: 20110804, end: 20110804
  2. DAPSONE [Concomitant]
     Route: 065
  3. ONDANSETRON [Concomitant]
     Indication: MALAISE
     Route: 065
  4. CAMPATH [Concomitant]
     Indication: CHRONIC LYMPHOCYTIC LEUKAEMIA
     Route: 042
     Dates: start: 20100101
  5. CAMPATH [Concomitant]
     Route: 042
     Dates: start: 20100501
  6. CANDESARTAN CILEXETIL [Concomitant]
     Indication: BLOOD PRESSURE
     Route: 065
  7. SENNA [Concomitant]
     Indication: CONSTIPATION
     Route: 065
  8. CHLORHEXIDINE MOUTHWASH [Concomitant]
     Route: 065
  9. BENDAMUSTINE HYDROCHLORIDE [Suspect]
     Indication: CHRONIC LYMPHOCYTIC LEUKAEMIA
     Route: 042
     Dates: start: 20110804, end: 20110805
  10. ATORVASTATIN [Concomitant]
     Indication: BLOOD CHOLESTEROL
  11. PROMETHAZINE [Concomitant]
     Indication: MOTION SICKNESS
     Route: 065
  12. AMITRIPTYLINE HCL [Concomitant]
     Route: 065
  13. AMITRIPTYLINE HCL [Concomitant]
     Route: 065
  14. FCFD4514S [Concomitant]
     Indication: CHRONIC LYMPHOCYTIC LEUKAEMIA
     Route: 065
     Dates: start: 20090101
  15. CALCICHEW D3 FORTE [Concomitant]
  16. PREDNISOLONE [Concomitant]
     Route: 065
  17. OMEPRAZOLE [Concomitant]
  18. LEVOTHYROXINE SODIUM [Concomitant]
     Dosage: 100 MCG
     Route: 065
  19. FLUCONAZOLE [Concomitant]
     Indication: CANDIDIASIS
     Route: 065
  20. RISEDRONATE NATRIUM [Concomitant]
  21. ACYCLOVIR [Concomitant]
     Indication: ANTIVIRAL PROPHYLAXIS
     Route: 065
  22. ALLOPURINOL [Concomitant]
     Route: 065
  23. OILATUM (CANADA) [Concomitant]
  24. METOCLOPRAMIDE [Concomitant]
     Indication: MALAISE
     Dosage: WHEN REQUIRED
     Route: 065
  25. CETIRIZINE HCL [Concomitant]
     Indication: HYPERSENSITIVITY
  26. RANITIDINE [Concomitant]
  27. LACTULOSE [Concomitant]
     Indication: CONSTIPATION
     Route: 065
  28. FLUDARA [Concomitant]
     Indication: CHRONIC LYMPHOCYTIC LEUKAEMIA
     Route: 048
     Dates: start: 20010101

REACTIONS (1)
  - PROGRESSIVE MULTIFOCAL LEUKOENCEPHALOPATHY [None]
